FAERS Safety Report 8870994 (Version 2)
Quarter: 2013Q1

REPORT INFORMATION
  Report Type: Spontaneous
  Country: US (occurrence: None)
  Receive Date: 20121025
  Receipt Date: 20130219
  Transmission Date: 20140127
  Serious: Yes (Hospitalization)
  Sender: FDA-Public Use
  Company Number: DKLU1085322

PATIENT
  Age: 54 Year
  Sex: Male

DRUGS (6)
  1. SABRIL [Suspect]
     Indication: EPILEPSY
     Route: 048
     Dates: start: 20111024
  2. KEPPRA (LEVTIRACETAM) [Concomitant]
  3. VIMPAT (LACOSAMIDE) [Concomitant]
  4. TRILEPTAL (OXCARBAZEPINE) [Concomitant]
  5. DEPAKOTE (VALPROATE SEMISODIUM) [Concomitant]
  6. DIAMOX (ACETAZOLAMIDE) [Concomitant]

REACTIONS (4)
  - Road traffic accident [None]
  - Staphylococcal infection [None]
  - Diarrhoea [None]
  - Multiple injuries [None]
